FAERS Safety Report 9230360 (Version 3)
Quarter: 2013Q4

REPORT INFORMATION
  Report Type: Spontaneous
  Country: US (occurrence: None)
  Receive Date: 20121031
  Receipt Date: 20131226
  Transmission Date: 20140711
  Serious: Yes (Other)
  Sender: FDA-Public Use
  Company Number: PHEH2012US013747

PATIENT
  Age: 36 Year
  Sex: Female
  Weight: 80.7 kg

DRUGS (7)
  1. GILENYA (FTY) CAPSULE, 0.5MG [Suspect]
     Indication: MULTIPLE SCLEROSIS
     Route: 048
     Dates: start: 20120514
  2. ORTHO TRI-CYCLEN (ETHINYLESTRADIOL, NORGESTIMATE) [Concomitant]
  3. ADDERALL (AMFETAMINE ASPARTATE, AMFETAMINE SULFATE, DEXAMFETAMINE SACCHARATE, DEXAMFETAMINE SULFATE) [Concomitant]
  4. ADVAIR (FLUTICASONE PROPIONATE, SALMETEROL XINAFOATE) [Concomitant]
  5. ALBUTEROL (SALBUTAMOL) [Concomitant]
  6. SINGULAIR (MONTELUKAST) 10MG [Concomitant]
  7. ESTROGEN NOS [Concomitant]

REACTIONS (8)
  - Fatigue [None]
  - Insomnia [None]
  - Polymenorrhoea [None]
  - Weight increased [None]
  - Heart rate decreased [None]
  - Multiple sclerosis relapse [None]
  - Gait disturbance [None]
  - Hypoaesthesia [None]
